FAERS Safety Report 9201159 (Version 1)
Quarter: 2013Q2

REPORT INFORMATION
  Report Type: Spontaneous
  Country: BR (occurrence: BR)
  Receive Date: 20130401
  Receipt Date: 20130401
  Transmission Date: 20140414
  Serious: Yes (Other)
  Sender: FDA-Public Use
  Company Number: PHHY2013BR030776

PATIENT
  Sex: Male

DRUGS (1)
  1. TEGRETOL CR [Suspect]
     Indication: CONVULSION
     Dosage: 4 DF, DAILY
     Route: 048

REACTIONS (4)
  - Toxoplasmosis [Not Recovered/Not Resolved]
  - Tuberculosis [Not Recovered/Not Resolved]
  - Nervous system disorder [Not Recovered/Not Resolved]
  - Convulsion [Not Recovered/Not Resolved]
